FAERS Safety Report 7002207-6 (Version None)
Quarter: 2010Q3

REPORT INFORMATION
  Report Type: 
  Country: None (occurrence: None)
  Receive Date: 20100920
  Receipt Date: 20090721
  Transmission Date: 20110219
  Serious: Yes (Other)
  Sender: FDA-Public Use
  Company Number: US-ASTRAZENECA-2007UW04797

PATIENT
  Sex: Male

DRUGS (6)
  1. SEROQUEL [Suspect]
     Dosage: 300 MH HS AND 25 T.I.D
     Route: 048
     Dates: start: 20040927
  2. ZOLOFT [Concomitant]
     Dates: start: 20040927
  3. KLONOPIN [Concomitant]
     Dosage: 0.5 TO 1 B.I.D TO T.I.D PRN, 1 MG HS
     Dates: start: 20040927
  4. LOPID [Concomitant]
  5. FLOMAX [Concomitant]
  6. TYLENOL [Concomitant]

REACTIONS (3)
  - DIABETES MELLITUS [None]
  - KETOACIDOSIS [None]
  - PANCREATITIS [None]
